FAERS Safety Report 9299404 (Version 1)
Quarter: 2013Q2

REPORT INFORMATION
  Report Type: Spontaneous
  Country: GB (occurrence: GB)
  Receive Date: 20130520
  Receipt Date: 20130520
  Transmission Date: 20140414
  Serious: Yes (Other)
  Sender: FDA-Public Use
  Company Number: GB-B.I. PHARMACEUTICALS,INC./RIDGEFIELD-2013-UK-01083UK

PATIENT
  Age: 76 Year
  Sex: Male
  Weight: 114.3 kg

DRUGS (10)
  1. PRADAXA [Suspect]
     Indication: ATRIAL FIBRILLATION
     Dosage: 220 MG
     Route: 048
     Dates: start: 20130416, end: 20130425
  2. BENDROFLUMETHIAZIDE [Concomitant]
  3. DIGOXIN [Concomitant]
  4. DOXAZOSIN [Concomitant]
  5. METFORMIN [Concomitant]
  6. PIOGLITAZONE [Concomitant]
  7. QVAR [Concomitant]
  8. RAMIPRIL [Concomitant]
  9. SIMVASTATIN [Concomitant]
  10. VERAPAMIL [Concomitant]

REACTIONS (2)
  - Nausea [Unknown]
  - Vomiting [Unknown]
